FAERS Safety Report 24749679 (Version 2)
Quarter: 2025Q1

REPORT INFORMATION
  Report Type: Report from Study
  Country: US (occurrence: US)
  Receive Date: 20241218
  Receipt Date: 20250108
  Transmission Date: 20250409
  Serious: Yes (Hospitalization, Other)
  Sender: PFIZER
  Company Number: US-PFIZER INC-202400325426

PATIENT
  Age: 82 Year
  Sex: Male
  Weight: 82 kg

DRUGS (7)
  1. VYNDAMAX [Suspect]
     Active Substance: TAFAMIDIS
     Indication: Cardiac amyloidosis
     Dosage: 61 MG, 1X/DAY
     Route: 048
     Dates: start: 20240112
  2. EPLERENONE [Concomitant]
     Active Substance: EPLERENONE
     Indication: Polyuria
     Dosage: 12.5 MG, 1X/DAY
     Route: 048
  3. FARXIGA [Concomitant]
     Active Substance: DAPAGLIFLOZIN PROPANEDIOL
     Indication: Cardiac disorder
     Dosage: 10 MG, 1X/DAY
     Route: 048
  4. TERAZOSIN [Concomitant]
     Active Substance: TERAZOSIN HYDROCHLORIDE
     Indication: Benign prostatic hyperplasia
     Dosage: 5 MG, DAILY
     Route: 048
  5. ELIQUIS [Concomitant]
     Active Substance: APIXABAN
     Indication: Anticoagulant therapy
     Dosage: 5 MG, 2X/DAY
     Route: 048
  6. TADALAFIL [Concomitant]
     Active Substance: TADALAFIL
     Indication: Erectile dysfunction
  7. ATORVASTATIN [Concomitant]
     Active Substance: ATORVASTATIN
     Indication: Blood cholesterol abnormal
     Dosage: 20 MG, DAILY
     Route: 048

REACTIONS (1)
  - Endocarditis [Recovered/Resolved]

NARRATIVE: CASE EVENT DATE: 20240801
